FAERS Safety Report 13325810 (Version 4)
Quarter: 2017Q3

REPORT INFORMATION
  Report Type: Report from Study
  Country: None (occurrence: GB)
  Receive Date: 20170310
  Receipt Date: 20170924
  Transmission Date: 20171127
  Serious: Yes (Death)
  Sender: FDA-Public Use
  Company Number: GB-ABBVIE-17K-167-1902821-00

PATIENT
  Sex: Female
  Weight: 66.3 kg

DRUGS (1)
  1. HUMIRA [Suspect]
     Active Substance: ADALIMUMAB
     Indication: PSORIASIS
     Route: 058
     Dates: start: 20130613

REACTIONS (6)
  - Intestinal infarction [Fatal]
  - Arteriosclerosis [Fatal]
  - Pancreatitis chronic [Fatal]
  - Thrombosis [Fatal]
  - Cerebrovascular accident [Fatal]
  - Hepatic infarction [Fatal]
